FAERS Safety Report 22071131 (Version 1)
Quarter: 2023Q1

REPORT INFORMATION
  Report Type: Spontaneous
  Country: KR (occurrence: KR)
  Receive Date: 20230307
  Receipt Date: 20230307
  Transmission Date: 20230418
  Serious: Yes (Other)
  Sender: FDA-Public Use
  Company Number: KR-ELI_LILLY_AND_COMPANY-KR202302012663

PATIENT
  Sex: Female

DRUGS (2)
  1. TERIPARATIDE [Suspect]
     Active Substance: TERIPARATIDE
     Indication: Fracture
     Dosage: 20 UG, DAILY
     Route: 058
     Dates: start: 20230103, end: 20230120
  2. TERIPARATIDE [Suspect]
     Active Substance: TERIPARATIDE
     Indication: Bone density decreased
     Dosage: 20 UG, DAILY
     Route: 058
     Dates: end: 202302

REACTIONS (2)
  - Shock [Unknown]
  - Asthenia [Unknown]

NARRATIVE: CASE EVENT DATE: 20230202
